FAERS Safety Report 23187039 (Version 1)
Quarter: 2023Q4

REPORT INFORMATION
  Report Type: Spontaneous
  Country: CA (occurrence: CA)
  Receive Date: 20231115
  Receipt Date: 20231115
  Transmission Date: 20240110
  Serious: Yes (Hospitalization, Other)
  Sender: FDA-Public Use
  Company Number: CA-FreseniusKabi-FK202318180

PATIENT
  Age: 53 Year
  Sex: Female

DRUGS (7)
  1. MILRINONE [Suspect]
     Active Substance: MILRINONE
     Indication: Vasospasm
     Dosage: PERFUSION
     Route: 042
  2. MILRINONE [Suspect]
     Active Substance: MILRINONE
     Route: 013
  3. NIMODIPINE [Concomitant]
     Active Substance: NIMODIPINE
     Indication: Prophylaxis
  4. SODIUM CHLORIDE [Concomitant]
     Active Substance: SODIUM CHLORIDE
     Indication: Polyuria
     Route: 042
  5. SODIUM CHLORIDE [Concomitant]
     Active Substance: SODIUM CHLORIDE
     Indication: Hyperchloraemia
  6. SODIUM CHLORIDE [Concomitant]
     Active Substance: SODIUM CHLORIDE
     Indication: Electrolyte imbalance
  7. DESMOPRESSIN [Concomitant]
     Active Substance: DESMOPRESSIN
     Indication: Diabetes insipidus
     Route: 042

REACTIONS (1)
  - Condition aggravated [Recovered/Resolved]
